FAERS Safety Report 6991443-0 (Version None)
Quarter: 2010Q3

REPORT INFORMATION
  Report Type: 
  Country: None (occurrence: None)
  Receive Date: 20100916
  Receipt Date: 20090911
  Transmission Date: 20110219
  Serious: No
  Sender: FDA-Public Use
  Company Number: US-WYE-H10963009

PATIENT
  Sex: Male

DRUGS (1)
  1. ADVIL PM [Suspect]

REACTIONS (2)
  - FALSE POSITIVE INVESTIGATION RESULT [None]
  - OPIATES POSITIVE [None]
